FAERS Safety Report 18661975 (Version 10)
Quarter: 2025Q1

REPORT INFORMATION
  Report Type: Report from Study
  Country: CA (occurrence: CA)
  Receive Date: 20201224
  Receipt Date: 20250321
  Transmission Date: 20250408
  Serious: Yes (Other)
  Sender: TAKEDA
  Company Number: CA-TAKEDA-2018TUS023790

PATIENT
  Age: 54 Year
  Sex: Female

DRUGS (27)
  1. VEDOLIZUMAB [Suspect]
     Active Substance: VEDOLIZUMAB
     Indication: Crohn^s disease
  2. VEDOLIZUMAB [Suspect]
     Active Substance: VEDOLIZUMAB
  3. VEDOLIZUMAB [Suspect]
     Active Substance: VEDOLIZUMAB
  4. VEDOLIZUMAB [Suspect]
     Active Substance: VEDOLIZUMAB
  5. VEDOLIZUMAB [Suspect]
     Active Substance: VEDOLIZUMAB
     Dosage: 300 MILLIGRAM, Q6WEEKS
     Dates: start: 20201229
  6. VEDOLIZUMAB [Suspect]
     Active Substance: VEDOLIZUMAB
  7. VEDOLIZUMAB [Suspect]
     Active Substance: VEDOLIZUMAB
  8. VEDOLIZUMAB [Suspect]
     Active Substance: VEDOLIZUMAB
     Dosage: 300 MILLIGRAM, Q4WEEKS
  9. VEDOLIZUMAB [Suspect]
     Active Substance: VEDOLIZUMAB
     Dosage: 300 MILLIGRAM, Q4WEEKS
  10. VEDOLIZUMAB [Suspect]
     Active Substance: VEDOLIZUMAB
     Dosage: 300 MILLIGRAM, Q4WEEKS
  11. VEDOLIZUMAB [Suspect]
     Active Substance: VEDOLIZUMAB
     Dosage: 300 MILLIGRAM, Q4WEEKS
  12. HYDROCHLOROTHIAZIDE [Concomitant]
     Active Substance: HYDROCHLOROTHIAZIDE
  13. SERTRALINE [Concomitant]
     Active Substance: SERTRALINE HYDROCHLORIDE
  14. LORAZEPAM [Concomitant]
     Active Substance: LORAZEPAM
  15. DEXAMETHASONE [Concomitant]
     Active Substance: DEXAMETHASONE
  16. OMEPRAZOLE [Concomitant]
     Active Substance: OMEPRAZOLE
  17. ZOPICLONE [Concomitant]
     Active Substance: ZOPICLONE
  18. POTASSIUM [Concomitant]
     Active Substance: POTASSIUM
  19. FENOFIBRATE [Concomitant]
     Active Substance: FENOFIBRATE
  20. WELLBUTRIN [Concomitant]
     Active Substance: BUPROPION HYDROCHLORIDE
  21. CALCIUM [Concomitant]
     Active Substance: CALCIUM
  22. OMEGA 3 [Concomitant]
     Active Substance: CAPSAICIN
  23. COLESTIPOL [Concomitant]
     Active Substance: COLESTIPOL
  24. VITAMIN B12 [Concomitant]
     Active Substance: CYANOCOBALAMIN
  25. ATIVAN [Concomitant]
     Active Substance: LORAZEPAM
  26. DEXTROAMPHETAMINE [Concomitant]
     Active Substance: DEXTROAMPHETAMINE
  27. IMODIUM [Concomitant]
     Active Substance: LOPERAMIDE HYDROCHLORIDE

REACTIONS (7)
  - Crohn^s disease [Unknown]
  - Off label use [Unknown]
  - Flank pain [Not Recovered/Not Resolved]
  - Diarrhoea [Not Recovered/Not Resolved]
  - Malaise [Unknown]
  - Drug ineffective [Unknown]
  - Discomfort [Not Recovered/Not Resolved]

NARRATIVE: CASE EVENT DATE: 20201229
